FAERS Safety Report 10885990 (Version 1)
Quarter: 2015Q1

REPORT INFORMATION
  Report Type: Spontaneous
  Country: US (occurrence: US)
  Receive Date: 20150304
  Receipt Date: 20150304
  Transmission Date: 20150721
  Serious: No
  Sender: FDA-Public Use
  Company Number: US-TEVA-545172USA

PATIENT
  Age: 39 Year
  Sex: Female
  Weight: 54.48 kg

DRUGS (2)
  1. PLAN B ONE-STEP [Suspect]
     Active Substance: LEVONORGESTREL
     Indication: MENSTRUAL CYCLE MANAGEMENT
     Dosage: 1.5 MILLIGRAM DAILY;
     Route: 048
     Dates: start: 20150222, end: 20150222
  2. ORTHO-28 [Concomitant]
     Indication: CONTRACEPTION

REACTIONS (4)
  - Intentional product misuse [Unknown]
  - Breast tenderness [Not Recovered/Not Resolved]
  - Dysmenorrhoea [Not Recovered/Not Resolved]
  - Menstruation delayed [Not Recovered/Not Resolved]

NARRATIVE: CASE EVENT DATE: 20150222
